FAERS Safety Report 10547789 (Version 1)
Quarter: 2014Q4

REPORT INFORMATION
  Report Type: Spontaneous
  Country: US (occurrence: None)
  Receive Date: 20141024
  Receipt Date: 20141024
  Transmission Date: 20150529
  Serious: Yes (Disabling)
  Sender: FDA-Public Use
  Company Number: None

PATIENT
  Age: 53 Year
  Sex: Female
  Weight: 78.02 kg

DRUGS (2)
  1. TORADOL [Suspect]
     Active Substance: KETOROLAC TROMETHAMINE
     Indication: TENDON DISORDER
     Route: 030
  2. TORADOL [Suspect]
     Active Substance: KETOROLAC TROMETHAMINE
     Indication: MUSCLE DISORDER
     Route: 030

REACTIONS (7)
  - Abdominal pain upper [None]
  - Diarrhoea [None]
  - Pain [None]
  - Wheezing [None]
  - Lethargy [None]
  - Myalgia [None]
  - Asthenia [None]

NARRATIVE: CASE EVENT DATE: 20141021
